FAERS Safety Report 6728778-2 (Version None)
Quarter: 2010Q2

REPORT INFORMATION
  Report Type: 
  Country: None (occurrence: None)
  Receive Date: 20100517
  Receipt Date: 20100215
  Transmission Date: 20101027
  Serious: No
  Sender: FDA-Public Use
  Company Number: US-ABBOTT-10P-163-0626474-00

PATIENT
  Sex: Male
  Weight: 95.34 kg

DRUGS (1)
  1. SIMCOR [Suspect]
     Indication: BLOOD CHOLESTEROL INCREASED
     Dosage: 500/20 MG DAILY AT BEDTIME
     Dates: start: 20100209, end: 20100212

REACTIONS (4)
  - RASH PAPULAR [None]
  - RASH PRURITIC [None]
  - SKIN TIGHTNESS [None]
  - URTICARIA [None]
